FAERS Safety Report 13419691 (Version 2)
Quarter: 2017Q4

REPORT INFORMATION
  Report Type: Spontaneous
  Country: US (occurrence: US)
  Receive Date: 20170407
  Receipt Date: 20171124
  Transmission Date: 20180320
  Serious: No
  Sender: FDA-Public Use
  Company Number: US-LUPIN PHARMACEUTICALS INC.-2017-01157

PATIENT
  Sex: Female
  Weight: 86.18 kg

DRUGS (3)
  1. DULOXETINE. [Suspect]
     Active Substance: DULOXETINE
     Indication: NEUROPATHY PERIPHERAL
     Dosage: 60 MG, UNK
     Route: 065
     Dates: start: 20170130, end: 20170204
  2. DULOXETINE. [Suspect]
     Active Substance: DULOXETINE
     Indication: NERVE INJURY
  3. LEVOTHYROXINE. [Concomitant]
     Active Substance: LEVOTHYROXINE
     Indication: THYROID DISORDER
     Dosage: 125 MG, QD
     Route: 065

REACTIONS (1)
  - Formication [Unknown]
